FAERS Safety Report 8974679 (Version 1)
Quarter: 2012Q4

REPORT INFORMATION
  Report Type: Spontaneous
  Country: US (occurrence: None)
  Receive Date: 20121217
  Receipt Date: 20121217
  Transmission Date: 20130627
  Serious: Yes (Hospitalization)
  Sender: FDA-Public Use
  Company Number: None

PATIENT
  Age: 52 Year
  Sex: Female

DRUGS (2)
  1. INDOMETHACIN [Suspect]
     Indication: BACK PAIN
     Dosage: po
     Route: 048
  2. IBUPROFEN [Suspect]
     Indication: BACK PAIN
     Dosage: 400 MG  PO
     Route: 048

REACTIONS (2)
  - Renal failure acute [None]
  - Overdose [None]
